FAERS Safety Report 7038897-1 (Version None)
Quarter: 2010Q4

REPORT INFORMATION
  Report Type: 
  Country: None (occurrence: None)
  Receive Date: 20101012
  Receipt Date: 20101004
  Transmission Date: 20110411
  Serious: Yes (Other)
  Sender: FDA-Public Use
  Company Number: US-BAYER-201024534NA

PATIENT
  Age: 31 Year
  Sex: Female

DRUGS (7)
  1. MIRENA [Suspect]
     Indication: CONTRACEPTION
     Dosage: FREQUENCY: CONTINUOUS
     Route: 015
     Dates: start: 20060401, end: 20091210
  2. FENTANYL [Concomitant]
     Dosage: 50 MCG/ML 2 ML AMP, 2 ITEMS
     Route: 065
     Dates: start: 20091210
  3. PROPOFOL [Concomitant]
     Dosage: 10 MG/ML
     Route: 065
     Dates: start: 20091210
  4. OXYGEN [Concomitant]
     Route: 065
     Dates: start: 20091210
  5. DEXAMETHASONE [Concomitant]
     Dosage: 4MG/ML
     Route: 065
     Dates: start: 20091210
  6. ONDANSETRON [Concomitant]
     Dosage: 2 MG/ML
     Route: 065
     Dates: start: 20091210
  7. MIDAZOLAM HCL [Concomitant]
     Dosage: 1 MG/ML
     Route: 065
     Dates: start: 20091210

REACTIONS (3)
  - DEVICE DISLOCATION [None]
  - INFERTILITY FEMALE [None]
  - PAIN [None]
